FAERS Safety Report 14495247 (Version 1)
Quarter: 2018Q1

REPORT INFORMATION
  Report Type: Spontaneous
  Country: US (occurrence: US)
  Receive Date: 20180206
  Receipt Date: 20180206
  Transmission Date: 20180509
  Serious: No
  Sender: FDA-Public Use
  Company Number: US-SMITH AND NEPHEW, INC-2017SMT00091

PATIENT
  Age: 64 Year
  Sex: Male
  Weight: 75.74 kg

DRUGS (6)
  1. COLLAGENASE SANTYL [Suspect]
     Active Substance: COLLAGENASE CLOSTRIDIUM HISTOLYTICUM
     Dosage: UNK, 2X/DAY
     Route: 061
     Dates: start: 201702
  2. NOVOLOG [Concomitant]
     Active Substance: INSULIN ASPART
  3. REGRANEX [Suspect]
     Active Substance: BECAPLERMIN
     Indication: DECUBITUS ULCER
     Dosage: UNK UNK, 1X/DAY FOR 12 HOURS ON AND 12 HOURS OFF
     Route: 061
     Dates: start: 20170131, end: 201702
  4. REGRANEX [Suspect]
     Active Substance: BECAPLERMIN
     Dosage: UNK UNK, 1X/DAY  FOR 12 HOURS ON AND 12 HOURS OFF
     Route: 061
     Dates: start: 201702, end: 201702
  5. LANTUS [Concomitant]
     Active Substance: INSULIN GLARGINE
  6. COLLAGENASE SANTYL [Suspect]
     Active Substance: COLLAGENASE CLOSTRIDIUM HISTOLYTICUM
     Indication: DECUBITUS ULCER
     Dosage: UNK, 2X/DAY
     Route: 061
     Dates: end: 201701

REACTIONS (3)
  - Wound complication [Not Recovered/Not Resolved]
  - Ulcer [Not Recovered/Not Resolved]
  - Application site exfoliation [Not Recovered/Not Resolved]

NARRATIVE: CASE EVENT DATE: 20170131
